FAERS Safety Report 6402017-4 (Version None)
Quarter: 2009Q4

REPORT INFORMATION
  Report Type: 
  Country: None (occurrence: None)
  Receive Date: 20091015
  Receipt Date: 20091005
  Transmission Date: 20100525
  Serious: Yes (Disabling, Other)
  Sender: FDA-Public Use
  Company Number: DE-JNJFOC-20091000264

PATIENT
  Age: 62 Year
  Sex: Female

DRUGS (1)
  1. CAELYX [Suspect]
     Indication: BREAST CANCER
     Dosage: 1ST CYCLE
     Route: 042

REACTIONS (5)
  - DYSPHAGIA [None]
  - GAIT DISTURBANCE [None]
  - PALMAR-PLANTAR ERYTHRODYSAESTHESIA SYNDROME [None]
  - SINUS TACHYCARDIA [None]
  - STOMATITIS [None]
